FAERS Safety Report 10654561 (Version 1)
Quarter: 2014Q4

REPORT INFORMATION
  Report Type: Spontaneous
  Country: GB (occurrence: None)
  Receive Date: 20141212
  Receipt Date: 20141212
  Transmission Date: 20150529
  Serious: Yes (Hospitalization, Disabling, Other)
  Sender: FDA-Public Use
  Company Number: CL-595-2014

PATIENT
  Age: 43 Year
  Sex: Male

DRUGS (2)
  1. NOREPINEPHRINE [Suspect]
     Active Substance: NOREPINEPHRINE\NOREPINEPHRINE BITARTRATE
     Indication: BLOOD PRESSURE ABNORMAL
     Dosage: STARTED AT 0.02 MCG /KG/MIN TITRATED TO 0.16 MCG/KG/MIN MAINTAINS AT 0.68 MCG/KG/MIN
     Route: 042
  2. MILRINONE [Suspect]
     Active Substance: MILRINONE
     Dosage: FIRST EPISODE A 5MG BOLUS OF MILIRONE OVER 10 MINUTES WAS GIVEN?
     Route: 040

REACTIONS (6)
  - Off label use [None]
  - Aphasia [None]
  - Hemiplegia [None]
  - IIIrd nerve paralysis [None]
  - Hemianopia homonymous [None]
  - Cerebral vasoconstriction [None]
